FAERS Safety Report 5039288-5 (Version None)
Quarter: 2006Q2

REPORT INFORMATION
  Report Type: 
  Country: None (occurrence: None)
  Receive Date: 20060629
  Receipt Date: 20060626
  Transmission Date: 20061013
  Serious: Yes (Death)
  Sender: FDA-Public Use
  Company Number: US-JNJFOC-20060605623

PATIENT
  Sex: Male

DRUGS (3)
  1. TYLENOL (CAPLET) [Suspect]
  2. TYLENOL (CAPLET) [Suspect]
     Indication: HEADACHE
     Dosage: 2600-2925 MG PER DAY FOR 1 WEEK
  3. INSULIN [Concomitant]

REACTIONS (1)
  - HEPATIC FAILURE [None]
